FAERS Safety Report 7324583-7 (Version None)
Quarter: 2011Q1

REPORT INFORMATION
  Report Type: 
  Country: None (occurrence: None)
  Receive Date: 20110218
  Receipt Date: 20110204
  Transmission Date: 20110831
  Serious: Yes (Hospitalization)
  Sender: FDA-Public Use
  Company Number: JPI-P-013804

PATIENT
  Age: 66 Year
  Sex: Female

DRUGS (2)
  1. XYREM [Suspect]
     Indication: CATAPLEXY
     Dosage: 4.5 GM (2.25 GM,2 IN 1 D),ORAL, 2) (TITRATING DOSE),ORAL,  7.5 GM (3.75 GM, 2 IN 1 D),ORAL
     Route: 048
     Dates: start: 20100707
  2. XYREM [Suspect]
     Indication: CATAPLEXY
     Dosage: 4.5 GM (2.25 GM,2 IN 1 D),ORAL, 2) (TITRATING DOSE),ORAL,  7.5 GM (3.75 GM, 2 IN 1 D),ORAL
     Route: 048
     Dates: start: 20100826

REACTIONS (4)
  - INFECTION [None]
  - DIZZINESS [None]
  - DIARRHOEA [None]
  - WEIGHT DECREASED [None]
